FAERS Safety Report 8515168-5 (Version None)
Quarter: 2012Q3

REPORT INFORMATION
  Report Type: 
  Country: None (occurrence: None)
  Receive Date: 20120717
  Receipt Date: 20120709
  Transmission Date: 20120928
  Serious: Yes (Hospitalization)
  Sender: FDA-Public Use
  Company Number: US-GLAXOSMITHKLINE-A0983769A

PATIENT
  Age: 68 Year
  Sex: Female

DRUGS (9)
  1. LANSOPRAZOLE [Concomitant]
  2. FISH OIL [Concomitant]
  3. FLOVENT [Suspect]
     Indication: BRONCHIECTASIS
     Dosage: 2APP AT NIGHT
     Route: 055
     Dates: start: 20120113, end: 20120113
  4. MULTI-VITAMIN [Concomitant]
  5. CALCIUM + D [Concomitant]
  6. GLUCOSAMINE [Concomitant]
  7. DOCUSATE SODIUM [Concomitant]
  8. PLAQUENIL [Concomitant]
  9. GOLD [Concomitant]

REACTIONS (23)
  - ATRIAL FIBRILLATION [None]
  - NEUROPATHY PERIPHERAL [None]
  - APPARENT DEATH [None]
  - DYSPNOEA [None]
  - ESCHERICHIA URINARY TRACT INFECTION [None]
  - STAPHYLOCOCCAL INFECTION [None]
  - EOSINOPHIL COUNT INCREASED [None]
  - ADVERSE DRUG REACTION [None]
  - DRY THROAT [None]
  - TONGUE DISORDER [None]
  - VOMITING [None]
  - STOMATITIS [None]
  - URINARY TRACT INFECTION [None]
  - CHEST PAIN [None]
  - ANAEMIA [None]
  - PLEURAL EFFUSION [None]
  - BLOOD URINE PRESENT [None]
  - PALLOR [None]
  - HAEMOGLOBIN DECREASED [None]
  - TONGUE HAEMORRHAGE [None]
  - PERICARDIAL EFFUSION [None]
  - FATIGUE [None]
  - ASTHENIA [None]
